FAERS Safety Report 11434590 (Version 2)
Quarter: 2015Q4

REPORT INFORMATION
  Report Type: Spontaneous
  Country: TR (occurrence: TR)
  Receive Date: 20150831
  Receipt Date: 20151120
  Transmission Date: 20160304
  Serious: Yes (Other)
  Sender: FDA-Public Use
  Company Number: TR-TEVA-590221ISR

PATIENT
  Age: 64 Year
  Sex: Female

DRUGS (7)
  1. CITALOPRAM [Suspect]
     Active Substance: CITALOPRAM HYDROBROMIDE
     Indication: PANIC DISORDER
     Dosage: 20 MILLIGRAM DAILY;
     Route: 065
  2. VENLAFLAXINE [Suspect]
     Active Substance: VENLAFAXINE HYDROCHLORIDE
     Indication: PANIC DISORDER
     Dosage: 37.5 MILLIGRAM DAILY;
     Route: 065
  3. PAROXETINE [Suspect]
     Active Substance: PAROXETINE\PAROXETINE HYDROCHLORIDE
     Indication: PANIC DISORDER
     Dosage: 20 MILLIGRAM DAILY;
     Route: 065
  4. BUSPIRONE [Suspect]
     Active Substance: BUSPIRONE HYDROCHLORIDE
     Indication: PANIC DISORDER
     Dosage: 15 MILLIGRAM DAILY;
     Route: 065
  5. SERTRALINE [Suspect]
     Active Substance: SERTRALINE HYDROCHLORIDE
     Indication: PANIC DISORDER
     Dosage: 50 MILLIGRAM DAILY;
     Dates: start: 201410
  6. CLOMIPRAMINE [Suspect]
     Active Substance: CLOMIPRAMINE
     Indication: PANIC DISORDER
     Dosage: 75 MILLIGRAM DAILY;
     Route: 065
  7. FLUOXETINE [Suspect]
     Active Substance: FLUOXETINE HYDROCHLORIDE
     Indication: PANIC DISORDER
     Dosage: 20 MILLIGRAM DAILY;
     Route: 065

REACTIONS (1)
  - Uterine haemorrhage [Recovered/Resolved]
